FAERS Safety Report 9958586 (Version 4)
Quarter: 2014Q3

REPORT INFORMATION
  Report Type: Spontaneous
  Country: JP (occurrence: JP)
  Receive Date: 20140305
  Receipt Date: 20140819
  Transmission Date: 20150326
  Serious: Yes (Hospitalization)
  Sender: FDA-Public Use
  Company Number: JP-009507513-1402JPN013422

PATIENT
  Age: 76 Year
  Sex: Female
  Weight: 151 kg

DRUGS (15)
  1. JANUVIA [Suspect]
     Active Substance: SITAGLIPTIN PHOSPHATE
     Dosage: 25 MG,THE PATIENT ONLY HAVE 50MG PILL, THE PILL WAS CUT HALF AND TAKEN THE AMOUNT OF  25MG EACH TIME
     Route: 048
     Dates: start: 20131217, end: 20140219
  2. WARFARIN [Concomitant]
     Active Substance: WARFARIN
     Indication: ATRIAL FIBRILLATION
     Dosage: 2.5 DF, QD
     Route: 048
     Dates: start: 20100315
  3. ASPARA CA [Concomitant]
     Indication: OSTEOPOROSIS
     Dosage: 200 MG, BID
     Route: 048
  4. CALFINA [Concomitant]
     Indication: OSTEOPOROSIS
     Dosage: 0.5 MG, QD
     Route: 048
  5. PL [Concomitant]
     Active Substance: ACETAMINOPHEN\CAFFEINE\PROMETHAZINE\SALICYLAMIDE
     Indication: COUGH
     Dosage: 1 G, TID
     Route: 048
     Dates: start: 20140130, end: 20140205
  6. RIZE [Concomitant]
     Active Substance: CLOTIAZEPAM
     Indication: INSOMNIA
     Dosage: 2 DF, QD
     Route: 048
     Dates: start: 20100315, end: 20140121
  7. CALONAL [Concomitant]
     Active Substance: ACETAMINOPHEN
     Indication: PAIN
     Dosage: 400 MG, BID
     Route: 048
     Dates: start: 20100929
  8. SISAAL [Concomitant]
     Active Substance: DEXTROMETHORPHAN HYDROBROMIDE
     Indication: COUGH
     Dosage: 1 DF, TID
     Route: 048
     Dates: start: 20140131, end: 20140205
  9. AMOBAN [Concomitant]
     Active Substance: ZOPICLONE
     Indication: INSOMNIA
     Dosage: 7.5 MG, QD
     Route: 048
     Dates: start: 20100315
  10. ADOAIR [Concomitant]
     Active Substance: FLUTICASONE PROPIONATE\SALMETEROL XINAFOATE
     Indication: COUGH
     Dosage: 250 MICROGRAM, BID
     Route: 055
     Dates: start: 20100512
  11. BLOPRESS [Concomitant]
     Active Substance: CANDESARTAN CILEXETIL
     Indication: HYPERTENSION
     Dosage: 1 DF, QD
     Route: 048
     Dates: start: 20100315
  12. RIZE [Concomitant]
     Active Substance: CLOTIAZEPAM
     Indication: ANXIETY
  13. AMLODIPINE [Concomitant]
     Active Substance: AMLODIPINE BESYLATE
     Indication: HYPERTENSION
     Dosage: 1 DF, QD
     Route: 048
     Dates: start: 20100315
  14. ARTIST [Concomitant]
     Active Substance: CARVEDILOL
     Indication: HYPERTENSION
     Dosage: 5 MG, QD
     Route: 048
     Dates: start: 20120114
  15. WARFARIN [Concomitant]
     Active Substance: WARFARIN
     Indication: THROMBOSIS PROPHYLAXIS

REACTIONS (3)
  - Interstitial lung disease [Recovering/Resolving]
  - Cardiac failure [Unknown]
  - Somnolence [Recovered/Resolved]

NARRATIVE: CASE EVENT DATE: 201401
